FAERS Safety Report 7788965-1 (Version None)
Quarter: 2011Q3

REPORT INFORMATION
  Report Type: 
  Country: None (occurrence: None)
  Receive Date: 20110930
  Receipt Date: 20110916
  Transmission Date: 20111222
  Serious: Yes (Hospitalization)
  Sender: FDA-Public Use
  Company Number: PHHO2011NL14753

PATIENT
  Sex: Male
  Weight: 98 kg

DRUGS (9)
  1. MYCOPHENOLIC ACID [Suspect]
     Indication: RENAL TRANSPLANT
     Dosage: 320 MG, BID
     Dates: start: 20110606
  2. NEXIUM [Concomitant]
     Indication: PROPHYLAXIS AGAINST GASTROINTESTINAL ULCER
     Dosage: 20 MG, QD
     Dates: start: 20110606
  3. NIFEDIPINE [Concomitant]
     Indication: HYPERTENSION
     Dosage: 60 MG, BID
     Dates: start: 20110607, end: 20110818
  4. PROGRAF [Suspect]
     Indication: RENAL TRANSPLANT
     Dosage: 5 MG, BID
     Route: 048
     Dates: start: 20110606
  5. CALCIUM W/COLECALCIFEROL [Concomitant]
     Indication: OSTEOPOROSIS PROPHYLAXIS
     Dosage: UNK
  6. NEORAL [Suspect]
     Indication: RENAL TRANSPLANT
     Dosage: 100 MG, BID
     Route: 048
     Dates: start: 20110913
  7. SIMULECT [Suspect]
     Indication: RENAL TRANSPLANT
     Dosage: UNK
     Dates: start: 20110606
  8. COTRIM [Concomitant]
     Indication: PROPHYLAXIS
     Dosage: UNK
     Dates: start: 20110607, end: 20110818
  9. PREDNISOLONE [Suspect]
     Indication: RENAL TRANSPLANT
     Dosage: 10 MG, QD
     Dates: start: 20110606

REACTIONS (2)
  - PYELONEPHRITIS [None]
  - UROSEPSIS [None]
